FAERS Safety Report 12929446 (Version 1)
Quarter: 2016Q4

REPORT INFORMATION
  Report Type: Spontaneous
  Country: US (occurrence: US)
  Receive Date: 20161110
  Receipt Date: 20161110
  Transmission Date: 20170207
  Serious: No
  Sender: FDA-Public Use
  Company Number: US-BAYER-2016-209643

PATIENT
  Age: 40 Year
  Sex: Female

DRUGS (1)
  1. CLIMARA [Suspect]
     Active Substance: ESTRADIOL
     Indication: OVARIAN FAILURE
     Dosage: 0.1 MG, UNK
     Route: 062
     Dates: start: 20161014

REACTIONS (7)
  - Abdominal distension [None]
  - Weight increased [None]
  - Pain [None]
  - Peripheral swelling [None]
  - Product adhesion issue [None]
  - Face oedema [None]
  - Off label use [None]

NARRATIVE: CASE EVENT DATE: 201610
